FAERS Safety Report 4428676-3 (Version None)
Quarter: 2004Q3

REPORT INFORMATION
  Report Type: 
  Country: None (occurrence: None)
  Receive Date: 20040818
  Receipt Date: 20031014
  Transmission Date: 20050211
  Serious: No
  Sender: FDA-Public Use
  Company Number: US-BRISTOL-MYERS SQUIBB COMPANY-12410254

PATIENT
  Age: 75 Year
  Sex: Male
  Weight: 165 kg

DRUGS (3)
  1. TEQUIN [Suspect]
     Indication: NASOPHARYNGITIS
     Route: 048
     Dates: start: 20031007
  2. MICRONASE [Concomitant]
     Dosage: REPORTED DOSE: 0.2 OR 0.4 THREE TIMES DAILY
  3. LIPITOR [Concomitant]

REACTIONS (2)
  - BLOOD GLUCOSE INCREASED [None]
  - DIARRHOEA [None]
